FAERS Safety Report 4980606-1 (Version None)
Quarter: 2006Q2

REPORT INFORMATION
  Report Type: 
  Country: None (occurrence: None)
  Receive Date: 20060424
  Receipt Date: 20060313
  Transmission Date: 20061013
  Serious: Yes (Other)
  Sender: FDA-Public Use
  Company Number: US-ROCHE-440371

PATIENT
  Age: 66 Year
  Sex: Female

DRUGS (3)
  1. BONIVA [Suspect]
     Indication: OSTEOPOROSIS
     Route: 048
     Dates: start: 20050722, end: 20060128
  2. DIOVAN [Concomitant]
     Indication: HYPERTENSION
     Dosage: GIVEN DAILY.
     Route: 065
  3. VYTORIN [Concomitant]
     Dosage: GIVEN DAILY.
     Route: 048

REACTIONS (20)
  - ABDOMINAL DISTENSION [None]
  - ABDOMINAL PAIN [None]
  - AXILLARY PAIN [None]
  - BLISTER [None]
  - BONE PAIN [None]
  - BREAST DISORDER [None]
  - BREAST PAIN [None]
  - BREAST SWELLING [None]
  - DEHYDRATION [None]
  - DIARRHOEA [None]
  - DYSPEPSIA [None]
  - HORMONE LEVEL ABNORMAL [None]
  - ILL-DEFINED DISORDER [None]
  - LYMPHADENITIS [None]
  - NECK PAIN [None]
  - NIPPLE DISORDER [None]
  - OLIGOMENORRHOEA [None]
  - PAIN IN EXTREMITY [None]
  - PRURITUS [None]
  - URINARY TRACT INFECTION [None]
